FAERS Safety Report 5948518-4 (Version None)
Quarter: 2008Q4

REPORT INFORMATION
  Report Type: 
  Country: None (occurrence: None)
  Receive Date: 20081111
  Receipt Date: 20081031
  Transmission Date: 20090506
  Serious: Yes (Other)
  Sender: FDA-Public Use
  Company Number: B0545588A

PATIENT
  Sex: Male

DRUGS (4)
  1. KIVEXA [Suspect]
     Indication: HIV INFECTION
     Dates: start: 20070309, end: 20070525
  2. INVIRASE [Suspect]
     Indication: HIV INFECTION
     Dates: start: 20070309, end: 20070525
  3. NORVIR [Suspect]
     Indication: HIV INFECTION
     Dates: start: 20070309, end: 20070525
  4. BACTRIM DS [Concomitant]
     Dates: start: 20070310

REACTIONS (1)
  - HEPATOTOXICITY [None]
